FAERS Safety Report 10231340 (Version 1)
Quarter: 2014Q2

REPORT INFORMATION
  Report Type: Spontaneous
  Country: US (occurrence: US)
  Receive Date: 20140611
  Receipt Date: 20140611
  Transmission Date: 20141212
  Serious: No
  Sender: FDA-Public Use
  Company Number: US-BAYER-2014-087350

PATIENT
  Age: 86 Year
  Sex: Female
  Weight: 77.1 kg

DRUGS (4)
  1. ALEVE CAPLET [Suspect]
     Indication: ARTHRITIS
     Dosage: 1 DF, BID
     Route: 048
     Dates: start: 201405
  2. FISH OIL [Concomitant]
  3. LIPITOR [Concomitant]
  4. CALCIUM [Concomitant]

REACTIONS (1)
  - Incorrect drug administration duration [Unknown]
